FAERS Safety Report 17136878 (Version 1)
Quarter: 2019Q4

REPORT INFORMATION
  Report Type: Spontaneous
  Country: US (occurrence: US)
  Receive Date: 20191210
  Receipt Date: 20191210
  Transmission Date: 20200122
  Serious: Yes (Other)
  Sender: FDA-Public Use
  Company Number: US-TEVA-2019-US-1149658

PATIENT
  Age: 52 Year
  Sex: Female

DRUGS (3)
  1. ERLOTINIB [Suspect]
     Active Substance: ERLOTINIB
     Indication: LUNG ADENOCARCINOMA
     Route: 065
  2. OSIMERTINIB. [Suspect]
     Active Substance: OSIMERTINIB
     Indication: LUNG ADENOCARCINOMA
     Dosage: 80 MILLIGRAM DAILY; INITIALLY STARTED AT 80 MG/DAY, AT 10 MONTHS DOSE ESCALATED TO 160 MG/DAY
     Route: 065
  3. OSIMERTINIB. [Suspect]
     Active Substance: OSIMERTINIB
     Dosage: 160 MILLIGRAM DAILY;
     Route: 065

REACTIONS (6)
  - Thrombocytopenia [Unknown]
  - Paronychia [Unknown]
  - Rash [Unknown]
  - Diarrhoea [Unknown]
  - Multiple-drug resistance [Unknown]
  - Dry skin [Unknown]
